FAERS Safety Report 24330222 (Version 1)
Quarter: 2024Q3

REPORT INFORMATION
  Report Type: Spontaneous
  Country: US (occurrence: None)
  Receive Date: 20240917
  Receipt Date: 20240917
  Transmission Date: 20241016
  Serious: No
  Sender: ASTRAZENECA
  Company Number: 2024A210506

PATIENT
  Sex: Female

DRUGS (1)
  1. BYDUREON BCISE [Suspect]
     Active Substance: EXENATIDE

REACTIONS (6)
  - Dyspnoea [Unknown]
  - Tremor [Unknown]
  - Blood glucose increased [Unknown]
  - Illness [Unknown]
  - Device use issue [Unknown]
  - Extra dose administered [Unknown]
